FAERS Safety Report 5626038-4 (Version None)
Quarter: 2008Q1

REPORT INFORMATION
  Report Type: 
  Country: None (occurrence: None)
  Receive Date: 20080214
  Receipt Date: 20080204
  Transmission Date: 20080703
  Serious: Yes (Hospitalization)
  Sender: FDA-Public Use
  Company Number: US-SP-2008-00394

PATIENT
  Age: 62 Year
  Sex: Male

DRUGS (2)
  1. BCG  THERAPEUTICS [Suspect]
     Indication: BLADDER CANCER RECURRENT
     Route: 043
  2. BCG  THERAPEUTICS [Suspect]
     Route: 043

REACTIONS (8)
  - BOVINE TUBERCULOSIS [None]
  - COUGH [None]
  - DISSEMINATED TUBERCULOSIS [None]
  - GRANULOMA [None]
  - HAEMATURIA [None]
  - HYPOXIA [None]
  - MALAISE [None]
  - PYREXIA [None]
